FAERS Safety Report 4590863-1 (Version None)
Quarter: 2005Q1

REPORT INFORMATION
  Report Type: 
  Country: None (occurrence: None)
  Receive Date: 20050225
  Receipt Date: 20040121
  Transmission Date: 20050727
  Serious: No
  Sender: FDA-Public Use
  Company Number: US-GLAXOSMITHKLINE-A0494491A

PATIENT
  Age: 46 Year
  Sex: Male

DRUGS (10)
  1. ZIAGEN [Suspect]
     Indication: HIV INFECTION
     Dosage: 300MG TWICE PER DAY
     Route: 048
  2. KALETRA [Concomitant]
  3. VIDEX [Concomitant]
  4. NEURONTIN [Concomitant]
  5. PRILOSEC [Concomitant]
  6. TRIMETHOPRIM [Concomitant]
     Route: 065
  7. IRON [Concomitant]
  8. VITAMINS [Concomitant]
  9. AUGMENTIN '125' [Concomitant]
  10. SULFAMETHOXAZOLE [Concomitant]
     Route: 065

REACTIONS (1)
  - RASH PRURITIC [None]
